FAERS Safety Report 5620594-8 (Version None)
Quarter: 2008Q1

REPORT INFORMATION
  Report Type: 
  Country: None (occurrence: None)
  Receive Date: 20080208
  Receipt Date: 20080125
  Transmission Date: 20080703
  Serious: Yes (Other)
  Sender: FDA-Public Use
  Company Number: US-BAYER-200812536GPV

PATIENT
  Age: 82 Year
  Sex: Female

DRUGS (15)
  1. MOXIFLOXACIN HCL [Suspect]
     Indication: RESPIRATORY TRACT INFECTION
     Route: 048
  2. VENLAFAXINE HCL [Concomitant]
     Indication: MAJOR DEPRESSION
     Route: 048
  3. FLUPHENAZINE [Concomitant]
     Indication: MAJOR DEPRESSION
  4. MIRTAZAPINE [Concomitant]
     Indication: MAJOR DEPRESSION
     Route: 048
  5. HYDROCHLOROTHIAZIDE [Concomitant]
     Indication: DRUG USE FOR UNKNOWN INDICATION
     Route: 065
  6. LISINOPRIL [Concomitant]
     Indication: DRUG USE FOR UNKNOWN INDICATION
     Route: 065
  7. METFORMIN HCL [Concomitant]
     Indication: DRUG USE FOR UNKNOWN INDICATION
     Route: 065
  8. PANTOPRAZOLE [Concomitant]
     Indication: DRUG USE FOR UNKNOWN INDICATION
     Route: 065
  9. ASPIRIN [Concomitant]
     Indication: DRUG USE FOR UNKNOWN INDICATION
     Route: 065
  10. AGGRENOX [Concomitant]
     Indication: DRUG USE FOR UNKNOWN INDICATION
     Route: 065
  11. VITAMIN E [Concomitant]
     Indication: DRUG USE FOR UNKNOWN INDICATION
     Route: 065
  12. IRON SULFATETHIAMIN COMPOUND TAB [Concomitant]
     Indication: DRUG USE FOR UNKNOWN INDICATION
     Route: 065
  13. MULTI-VITAMIN [Concomitant]
     Indication: DRUG USE FOR UNKNOWN INDICATION
     Route: 065
  14. METHOHEXITAL [Concomitant]
     Indication: ANAESTHESIA
     Dosage: TOTAL DAILY DOSE: 50 MG
     Route: 042
  15. SUCCINYLCHOLINE CHLORIDE [Concomitant]
     Indication: HYPOTONIA
     Dosage: TOTAL DAILY DOSE: 40 MG
     Route: 042

REACTIONS (1)
  - CONVULSION [None]
